FAERS Safety Report 8150083-0 (Version None)
Quarter: 2012Q1

REPORT INFORMATION
  Report Type: 
  Country: None (occurrence: None)
  Receive Date: 20120220
  Receipt Date: 20120214
  Transmission Date: 20120608
  Serious: Yes (Hospitalization)
  Sender: FDA-Public Use
  Company Number: US-BIOGENIDEC-2011BI032813

PATIENT
  Age: 62 Year
  Sex: Female

DRUGS (1)
  1. TYSABRI [Suspect]
     Indication: MULTIPLE SCLEROSIS
     Route: 042
     Dates: start: 20101209

REACTIONS (7)
  - ADVERSE DRUG REACTION [None]
  - HEADACHE [None]
  - REFLEXES ABNORMAL [None]
  - APHONIA [None]
  - DYSPNOEA [None]
  - NASAL SEPTUM DEVIATION [None]
  - NASAL INFLAMMATION [None]
